FAERS Safety Report 12587596 (Version 1)
Quarter: 2016Q3

REPORT INFORMATION
  Report Type: Spontaneous
  Country: US (occurrence: US)
  Receive Date: 20160725
  Receipt Date: 20160725
  Transmission Date: 20161109
  Serious: No
  Sender: FDA-Public Use
  Company Number: US-GLAXOSMITHKLINE-US2016GSK100982

PATIENT
  Sex: Female

DRUGS (1)
  1. COREG [Suspect]
     Active Substance: CARVEDILOL

REACTIONS (2)
  - Hypotension [Unknown]
  - Wrong technique in product usage process [Unknown]
